FAERS Safety Report 12586155 (Version 1)
Quarter: 2016Q3

REPORT INFORMATION
  Report Type: Spontaneous
  Country: US (occurrence: None)
  Receive Date: 20160722
  Receipt Date: 20160722
  Transmission Date: 20161109
  Serious: No
  Sender: FDA-Public Use
  Company Number: None

PATIENT
  Age: 61 Year
  Sex: Male

DRUGS (1)
  1. REPATHA [Suspect]
     Active Substance: EVOLOCUMAB
     Indication: HYPERLIPIDAEMIA
     Dosage: 140MG/ML PEN 2 PK 140MG EVY 2 WKS SC
     Route: 058
     Dates: start: 20160308

REACTIONS (2)
  - Productive cough [None]
  - Pharyngitis [None]

NARRATIVE: CASE EVENT DATE: 2016
